FAERS Safety Report 12339108 (Version 2)
Quarter: 2016Q2

REPORT INFORMATION
  Report Type: Spontaneous
  Country: US (occurrence: US)
  Receive Date: 20160505
  Receipt Date: 20160505
  Transmission Date: 20160815
  Serious: No
  Sender: FDA-Public Use
  Company Number: US-MAYNE PHARMA-2016MYN000117

PATIENT
  Sex: Female
  Weight: 50.79 kg

DRUGS (5)
  1. VITAMINS                           /00067501/ [Concomitant]
     Active Substance: VITAMINS
     Indication: SUPPLEMENTATION THERAPY
     Dosage: UNK
  2. LEVOTHYROXINE. [Concomitant]
     Active Substance: LEVOTHYROXINE
     Indication: AUTOIMMUNE THYROIDITIS
     Dosage: UNK
  3. LIOTHYRONINE [Suspect]
     Active Substance: LIOTHYRONINE
     Dosage: 2 TABLETS QAM AND 1 TABLET QPM
     Route: 048
     Dates: start: 2016
  4. LIOTHYRONINE [Suspect]
     Active Substance: LIOTHYRONINE
     Indication: AUTOIMMUNE THYROIDITIS
     Dosage: 1 DF, QAM
     Route: 048
     Dates: start: 20151005, end: 2015
  5. LIOTHYRONINE [Suspect]
     Active Substance: LIOTHYRONINE
     Dosage: 2 DF, QAM
     Route: 048
     Dates: start: 2015, end: 2016

REACTIONS (4)
  - Restlessness [Not Recovered/Not Resolved]
  - Feeling jittery [Not Recovered/Not Resolved]
  - Product odour abnormal [Unknown]
  - Product taste abnormal [Unknown]

NARRATIVE: CASE EVENT DATE: 2016
